FAERS Safety Report 6243778-7 (Version None)
Quarter: 2009Q2

REPORT INFORMATION
  Report Type: 
  Country: None (occurrence: None)
  Receive Date: 20090624
  Receipt Date: 20090616
  Transmission Date: 20091009
  Serious: Yes (Other)
  Sender: FDA-Public Use
  Company Number: US-GENENTECH-285409

PATIENT
  Age: 71 Year
  Sex: Male

DRUGS (9)
  1. RITUXAN [Suspect]
     Indication: CHRONIC LYMPHOCYTIC LEUKAEMIA
     Dosage: UNK
     Dates: end: 20090107
  2. FLUDARA [Suspect]
     Indication: CHRONIC LYMPHOCYTIC LEUKAEMIA
     Dosage: UNK
     Dates: end: 20090107
  3. COUMADIN [Concomitant]
     Indication: DRUG USE FOR UNKNOWN INDICATION
  4. FLOMAX [Concomitant]
     Indication: DRUG USE FOR UNKNOWN INDICATION
  5. KLOR-CON [Concomitant]
     Indication: DRUG USE FOR UNKNOWN INDICATION
  6. DEXAMETHASONE [Concomitant]
     Indication: DRUG USE FOR UNKNOWN INDICATION
  7. TRAZODONE HCL [Concomitant]
     Indication: DRUG USE FOR UNKNOWN INDICATION
  8. NEURONTIN [Concomitant]
     Indication: DRUG USE FOR UNKNOWN INDICATION
  9. KENALOG [Concomitant]
     Indication: RASH

REACTIONS (1)
  - POLYNEUROPATHY [None]
